FAERS Safety Report 5718873-9 (Version None)
Quarter: 2008Q2

REPORT INFORMATION
  Report Type: 
  Country: None (occurrence: None)
  Receive Date: 20080423
  Receipt Date: 20080409
  Transmission Date: 20081010
  Serious: Yes (Hospitalization)
  Sender: FDA-Public Use
  Company Number: POMP-1000102

PATIENT
  Age: 2 Year
  Sex: Female
  Weight: 11 kg

DRUGS (1)
  1. MYOZYME [Suspect]
     Indication: GLYCOGEN STORAGE DISEASE TYPE II
     Dosage: 20 MG/KG, Q2W, INTRAVENOUS
     Route: 042
     Dates: start: 20050802

REACTIONS (15)
  - ATELECTASIS [None]
  - BRADYCARDIA [None]
  - HYPERTROPHIC CARDIOMYOPATHY [None]
  - HYPOTENSION [None]
  - ILL-DEFINED DISORDER [None]
  - IMPAIRED GASTRIC EMPTYING [None]
  - MYOCARDIAL ISCHAEMIA [None]
  - NAUSEA [None]
  - OESOPHAGEAL DISORDER [None]
  - OESOPHAGEAL OBSTRUCTION [None]
  - PYLORIC STENOSIS [None]
  - REGURGITATION [None]
  - SEROCONVERSION TEST POSITIVE [None]
  - STAPHYLOCOCCAL INFECTION [None]
  - VENTRICULAR EXTRASYSTOLES [None]
